FAERS Safety Report 7218019-4 (Version None)
Quarter: 2011Q1

REPORT INFORMATION
  Report Type: 
  Country: None (occurrence: None)
  Receive Date: 20110110
  Receipt Date: 20101231
  Transmission Date: 20110831
  Serious: Yes (Other)
  Sender: FDA-Public Use
  Company Number: TR-PFIZER INC-TR-WYE-H16853310

PATIENT
  Age: 44 Year
  Sex: Female
  Weight: 90 kg

DRUGS (4)
  1. RAPAMUNE [Suspect]
     Indication: IMMUNOSUPPRESSANT DRUG THERAPY
     Dosage: 1 MG, 1X/DAY
     Route: 048
     Dates: start: 20091112, end: 20100726
  2. MYFORTIC [Concomitant]
     Dosage: UNK
     Route: 065
     Dates: start: 20100713
  3. PREDNISOLONE [Concomitant]
     Dosage: UNK
     Route: 065
     Dates: start: 20091120
  4. PROGRAF [Concomitant]
     Dosage: UNK
     Route: 065
     Dates: start: 20100726

REACTIONS (1)
  - COAGULOPATHY [None]
